FAERS Safety Report 22245150 (Version 4)
Quarter: 2023Q2

REPORT INFORMATION
  Report Type: Spontaneous
  Country: None (occurrence: GR)
  Receive Date: 20230424
  Receipt Date: 20230512
  Transmission Date: 20230721
  Serious: Yes (Other)
  Sender: FDA-Public Use
  Company Number: GR-Therakind Limited-2140705

PATIENT
  Age: 54 Year
  Sex: Male

DRUGS (5)
  1. METHOTREXATE [Suspect]
     Active Substance: METHOTREXATE
     Indication: Product used for unknown indication
     Dates: start: 20190711
  2. METHYLPREDNISOLONE [Suspect]
     Active Substance: METHYLPREDNISOLONE
  3. ETANERCEPT [Suspect]
     Active Substance: ETANERCEPT
  4. INFLIXIMAB [Suspect]
     Active Substance: INFLIXIMAB
  5. ADALIMUMAB [Suspect]
     Active Substance: ADALIMUMAB

REACTIONS (12)
  - Polychondritis [Unknown]
  - Rash [Unknown]
  - C-reactive protein increased [Unknown]
  - Tracheomalacia [Unknown]
  - Drug hypersensitivity [Unknown]
  - Pyrexia [Unknown]
  - Bronchomalacia [Unknown]
  - Musculoskeletal stiffness [Unknown]
  - Pain [Unknown]
  - Red blood cell sedimentation rate increased [Unknown]
  - Episcleritis [Unknown]
  - Oedema [Recovered/Resolved]
